FAERS Safety Report 9465623 (Version 2)
Quarter: 2013Q3

REPORT INFORMATION
  Report Type: Report from Study
  Country: DE (occurrence: DE)
  Receive Date: 20130820
  Receipt Date: 20130820
  Transmission Date: 20140515
  Serious: Yes (Life-Threatening, Hospitalization, Other)
  Sender: FDA-Public Use
  Company Number: DE-TEVA-413927USA

PATIENT
  Sex: 0

DRUGS (11)
  1. BENDAMUSTINE [Suspect]
     Indication: LEUKAEMIC LYMPHOMA
     Route: 042
     Dates: start: 201112, end: 201204
  2. RITUXIMAB [Suspect]
     Indication: LEUKAEMIC LYMPHOMA
     Dates: start: 201112, end: 201204
  3. RITUXIMAB [Suspect]
     Dosage: UNKNOWN/D
     Dates: start: 20130220
  4. BORTEZOMIB [Suspect]
     Indication: LEUKAEMIC LYMPHOMA
     Dates: start: 20130220
  5. DEXAMETHASONE [Suspect]
     Indication: LEUKAEMIC LYMPHOMA
     Dosage: UNKNOWN/D
     Dates: start: 20130220
  6. DEXAMETHASONE [Suspect]
     Dosage: UNKNOWN/D
     Dates: start: 20130304
  7. CYTARABINE [Suspect]
     Indication: LEUKAEMIC LYMPHOMA
     Dosage: UNKNOWN/D
     Dates: start: 20130220
  8. CYTARABINE [Suspect]
     Dates: start: 20130304
  9. CARMUSTINE [Suspect]
     Indication: LEUKAEMIC LYMPHOMA
     Dosage: UNKNOWN/D
     Dates: start: 20130304
  10. MELPHALAN [Suspect]
     Indication: LEUKAEMIC LYMPHOMA
     Dosage: UNKNOWN/D
     Dates: start: 20130304
  11. ETOPOSIDE [Suspect]
     Indication: LEUKAEMIC LYMPHOMA
     Dosage: UNKNOWN/D
     Dates: start: 20130304

REACTIONS (16)
  - Pulmonary embolism [Recovered/Resolved]
  - Respiratory failure [Unknown]
  - Dysuria [Unknown]
  - Dysphagia [Unknown]
  - Oropharyngeal pain [Unknown]
  - Pelvic venous thrombosis [Unknown]
  - Mantle cell lymphoma [Unknown]
  - Night sweats [Unknown]
  - Pain [Unknown]
  - Weight decreased [Unknown]
  - Performance status decreased [Unknown]
  - Diarrhoea [Unknown]
  - Pyrexia [Unknown]
  - Bronchopulmonary aspergillosis [Recovering/Resolving]
  - Pancytopenia [Unknown]
  - Urinary tract infection enterococcal [Recovering/Resolving]
